FAERS Safety Report 6264506-5 (Version None)
Quarter: 2009Q3

REPORT INFORMATION
  Report Type: 
  Country: None (occurrence: None)
  Receive Date: 20090708
  Receipt Date: 20090622
  Transmission Date: 20100115
  Serious: Yes (Death, Hospitalization)
  Sender: FDA-Public Use
  Company Number: ADE2009-0687

PATIENT
  Age: 73 Year
  Sex: Male

DRUGS (3)
  1. METFORMIN HCL [Suspect]
     Dosage: 10 TABLETS, X 1, ORAL
     Route: 048
     Dates: start: 20071001
  2. PERINDOPRIL [Suspect]
     Dates: start: 20071001
  3. GLICLAZIDE [Suspect]
     Dates: start: 20071001

REACTIONS (10)
  - BLOOD CHLORIDE DECREASED [None]
  - BLOOD GLUCOSE INCREASED [None]
  - DISSEMINATED INTRAVASCULAR COAGULATION [None]
  - HYPOTENSION [None]
  - LACTIC ACIDOSIS [None]
  - METABOLIC ACIDOSIS [None]
  - OVERDOSE [None]
  - PULMONARY OEDEMA [None]
  - RENAL IMPAIRMENT [None]
  - SINUS TACHYCARDIA [None]
